FAERS Safety Report 19364203 (Version 1)
Quarter: 2021Q2

REPORT INFORMATION
  Report Type: Report from Study
  Country: US (occurrence: US)
  Receive Date: 20210603
  Receipt Date: 20210603
  Transmission Date: 20210717
  Serious: Yes (Hospitalization, Other)
  Sender: FDA-Public Use
  Company Number: US-GILEAD-2021-0533724

PATIENT
  Age: 86 Year
  Sex: Male

DRUGS (9)
  1. ALBUTEROL SULFATE. [Concomitant]
     Active Substance: ALBUTEROL SULFATE
     Dosage: ALBUTEROL SULFATE 0.63MG/3ML VIAL?NEB
  2. LASIX + K [Concomitant]
     Active Substance: FUROSEMIDE\POTASSIUM CHLORIDE
     Dosage: LASIX 20 MG TABLET
  3. VITAMIN B12 [Concomitant]
     Active Substance: CYANOCOBALAMIN
     Dosage: VITAMIN B12 2500 MCG TABLET
  4. AZTREONAM LYSINE [Suspect]
     Active Substance: AZTREONAM LYSINE
     Indication: PNEUMONIA PSEUDOMONAL
     Dosage: 75 MG, TID, EVERY OTHER MONTH
     Route: 055
     Dates: start: 202105
  5. ELIQUIS [Concomitant]
     Active Substance: APIXABAN
     Dosage: ELIQUIS 2.5 MG TABLET
  6. GABAPENTIN. [Concomitant]
     Active Substance: GABAPENTIN
     Dosage: GABAPENTIN 100 MG CAPSULE
  7. DIGOXIN. [Concomitant]
     Active Substance: DIGOXIN
     Dosage: DIGOXIN 125 MCG TABLET
  8. CENTRUM SILVER +50 [Concomitant]
     Active Substance: MINERALS\VITAMINS
  9. TRELEGY ELLIPTA [Concomitant]
     Active Substance: FLUTICASONE FUROATE\UMECLIDINIUM BROMIDE\VILANTEROL TRIFENATATE
     Dosage: TRELEGY ELLIPTA 100?62.5 BLST W/DEV

REACTIONS (3)
  - Myocardial infarction [Unknown]
  - Off label use [Unknown]
  - Obstructive airways disorder [Not Recovered/Not Resolved]

NARRATIVE: CASE EVENT DATE: 202105
